FAERS Safety Report 7365120-0 (Version None)
Quarter: 2011Q1

REPORT INFORMATION
  Report Type: 
  Country: None (occurrence: None)
  Receive Date: 20110321
  Receipt Date: 20110311
  Transmission Date: 20110831
  Serious: Yes (Death, Other)
  Sender: FDA-Public Use
  Company Number: US-PFIZER INC-2011044637

PATIENT
  Sex: Female
  Weight: 52 kg

DRUGS (4)
  1. TRAZODONE [Concomitant]
     Dosage: 50 MG, ONE TABLET AT BED TIME
     Dates: start: 20040927
  2. NEURONTIN [Suspect]
     Dosage: 100 MG, 3X/DAY
     Dates: start: 20040909
  3. ALPRAZOLAM [Concomitant]
     Dosage: 0.5 MG, TWO TABLETS DAILY AS NEEDED
     Dates: start: 20040927
  4. CLONAZEPAM [Concomitant]
     Dosage: 1 MG, 3X/DAY AS NEEDED
     Dates: start: 20040927

REACTIONS (1)
  - COMPLETED SUICIDE [None]
